FAERS Safety Report 7358648-0 (Version None)
Quarter: 2011Q1

REPORT INFORMATION
  Report Type: 
  Country: None (occurrence: None)
  Receive Date: 20110317
  Receipt Date: 20110304
  Transmission Date: 20110831
  Serious: Yes (Hospitalization, Other)
  Sender: FDA-Public Use
  Company Number: PHHY2011IT18230

PATIENT
  Age: 10 Year
  Sex: Male

DRUGS (12)
  1. ANTI-THYMOCYTE GLOBULIN RABBIT NOS [Suspect]
     Indication: GRAFT VERSUS HOST DISEASE
  2. CYCLOPHOSPHAMIDE [Suspect]
     Indication: STEM CELL TRANSPLANT
  3. CYCLOSPORINE [Suspect]
     Indication: STEM CELL TRANSPLANT
     Dosage: 0.5 MG/KG, UNK
  4. CYCLOSPORINE [Suspect]
     Indication: GRAFT VERSUS HOST DISEASE
  5. METHOTREXATE [Suspect]
     Indication: GRAFT VERSUS HOST DISEASE
  6. IRRADIATION [Suspect]
  7. METHOTREXATE [Suspect]
     Indication: STEM CELL TRANSPLANT
  8. METHYLPREDNISOLONE [Suspect]
     Indication: GRAFT VERSUS HOST DISEASE
     Dosage: 0.1 MG/KG, UNK
  9. MONOCLONAL ANTIBODIES [Suspect]
     Indication: GRAFT VERSUS HOST DISEASE
  10. AZATHIOPRINE [Suspect]
     Indication: GRAFT VERSUS HOST DISEASE
     Dosage: 0.7 MG/KG, UNK
  11. ANTI-THYMOCYTE GLOBULIN RABBIT NOS [Suspect]
     Indication: STEM CELL TRANSPLANT
  12. CYCLOPHOSPHAMIDE [Suspect]
     Indication: GRAFT VERSUS HOST DISEASE

REACTIONS (19)
  - PARANASAL SINUS DISCOMFORT [None]
  - LYMPHADENOPATHY [None]
  - PYREXIA [None]
  - TONSILLAR HYPERTROPHY [None]
  - CYTOMEGALOVIRUS INFECTION [None]
  - CARDIOTOXICITY [None]
  - HUMAN HERPESVIRUS 8 INFECTION [None]
  - ACUTE GRAFT VERSUS HOST DISEASE IN INTESTINE [None]
  - ORAL DISORDER [None]
  - RHINITIS HYPERTROPHIC [None]
  - EPSTEIN-BARR VIRUS INFECTION [None]
  - CHRONIC GRAFT VERSUS HOST DISEASE [None]
  - LUNG NEOPLASM [None]
  - CRYPTOSPORIDIOSIS INFECTION [None]
  - KAPOSI'S SARCOMA [None]
  - SARCOMA METASTATIC [None]
  - GASTROINTESTINAL DISORDER [None]
  - MALAISE [None]
  - OBSTRUCTIVE AIRWAYS DISORDER [None]
